FAERS Safety Report 11100877 (Version 1)
Quarter: 2015Q2

REPORT INFORMATION
  Report Type: Report from Study
  Country: US (occurrence: US)
  Receive Date: 20150508
  Receipt Date: 20150508
  Transmission Date: 20150821
  Serious: Yes (Death)
  Sender: FDA-Public Use
  Company Number: PHEH2015US008837

PATIENT
  Age: 94 Year
  Sex: Male
  Weight: 67.57 kg

DRUGS (1)
  1. EXJADE [Suspect]
     Active Substance: DEFERASIROX
     Indication: HAEMOSIDEROSIS
     Dosage: 500 MG, QD
     Route: 048
     Dates: start: 20110302

REACTIONS (1)
  - Death [Fatal]

NARRATIVE: CASE EVENT DATE: 20150505
